FAERS Safety Report 6518826-7 (Version None)
Quarter: 2009Q4

REPORT INFORMATION
  Report Type: 
  Country: None (occurrence: None)
  Receive Date: 20091228
  Receipt Date: 20091216
  Transmission Date: 20100525
  Serious: No
  Sender: FDA-Public Use
  Company Number: US-JNJFOC-20091206373

PATIENT
  Sex: Female
  Weight: 84.37 kg

DRUGS (3)
  1. DURAGESIC-100 [Suspect]
     Indication: PAIN
     Route: 062
  2. DURAGESIC-100 [Suspect]
     Route: 062
  3. DURAGESIC-100 [Suspect]
     Route: 062

REACTIONS (3)
  - DRUG DOSE OMISSION [None]
  - DRUG INEFFECTIVE [None]
  - WEIGHT DECREASED [None]
